FAERS Safety Report 4273868-X (Version None)
Quarter: 2004Q1

REPORT INFORMATION
  Report Type: 
  Country: None (occurrence: None)
  Receive Date: 20040115
  Receipt Date: 20031230
  Transmission Date: 20041129
  Serious: Yes (Life-Threatening, Hospitalization, Other)
  Sender: FDA-Public Use
  Company Number: USA040155764

PATIENT
  Age: 1 Day
  Sex: Male
  Weight: 3 kg

DRUGS (1)
  1. PROZAC [Suspect]
     Dates: start: 20010101

REACTIONS (8)
  - BLOOD PRESSURE INCREASED [None]
  - COGNITIVE DISORDER [None]
  - DEVELOPMENTAL DELAY [None]
  - DIFFICULTY IN WALKING [None]
  - EXPRESSIVE LANGUAGE DISORDER [None]
  - MATERNAL DRUGS AFFECTING FOETUS [None]
  - NEONATAL DISORDER [None]
  - NEONATAL RESPIRATORY ARREST [None]
